FAERS Safety Report 8805045 (Version 2)
Quarter: 2015Q2

REPORT INFORMATION
  Report Type: Report from Study
  Country: US (occurrence: US)
  Receive Date: 20120924
  Receipt Date: 20150620
  Transmission Date: 20150821
  Serious: Yes (Death)
  Sender: FDA-Public Use
  Company Number: US-ROCHE-1126626

PATIENT
  Sex: Male

DRUGS (14)
  1. GEMZAR [Concomitant]
     Active Substance: GEMCITABINE HYDROCHLORIDE
     Route: 042
  2. AVASTIN [Suspect]
     Active Substance: BEVACIZUMAB
     Route: 042
  3. ARANESP [Concomitant]
     Active Substance: DARBEPOETIN ALFA
     Route: 058
  4. GEMZAR [Concomitant]
     Active Substance: GEMCITABINE HYDROCHLORIDE
     Route: 042
  5. KYTRIL [Concomitant]
     Active Substance: GRANISETRON HYDROCHLORIDE
     Route: 065
  6. MAGNESIUM SULPHATE [Concomitant]
     Active Substance: MAGNESIUM SULFATE
     Route: 042
  7. TAXOTERE [Concomitant]
     Active Substance: DOCETAXEL
     Route: 065
  8. ELOXATIN [Concomitant]
     Active Substance: OXALIPLATIN
     Dosage: 160 MG, 140 MG, 150 MG, 220 MG
     Route: 042
  9. CALCIUM GLUCONATE. [Concomitant]
     Active Substance: CALCIUM GLUCONATE
     Route: 065
  10. AVASTIN [Suspect]
     Active Substance: BEVACIZUMAB
     Indication: CHOLANGIOCARCINOMA
     Route: 042
     Dates: start: 20050602
  11. AVASTIN [Suspect]
     Active Substance: BEVACIZUMAB
     Route: 042
  12. DECADRON [Concomitant]
     Active Substance: DEXAMETHASONE
     Route: 042
  13. ALOXI [Concomitant]
     Active Substance: PALONOSETRON HYDROCHLORIDE
     Route: 042
  14. AVASTIN [Suspect]
     Active Substance: BEVACIZUMAB
     Route: 042

REACTIONS (3)
  - Off label use [Unknown]
  - Death [Fatal]
  - Discomfort [Unknown]
